FAERS Safety Report 4680284-5 (Version None)
Quarter: 2005Q2

REPORT INFORMATION
  Report Type: 
  Country: None (occurrence: None)
  Receive Date: 20050601
  Receipt Date: 20050519
  Transmission Date: 20051028
  Serious: Yes (Death, Hospitalization)
  Sender: FDA-Public Use
  Company Number: 2005-01104

PATIENT
  Sex: Male

DRUGS (2)
  1. VELCADE [Suspect]
     Dosage: INTRAVENOUS
     Route: 042
  2. DEXAMETHASONE [Concomitant]

REACTIONS (3)
  - ABDOMINAL PAIN [None]
  - ESCHERICHIA INFECTION [None]
  - SEPTIC SHOCK [None]
